FAERS Safety Report 8747782 (Version 5)
Quarter: 2013Q1

REPORT INFORMATION
  Report Type: Spontaneous
  Country: GB (occurrence: GB)
  Receive Date: 20120827
  Receipt Date: 20130116
  Transmission Date: 20140127
  Serious: Yes (Other)
  Sender: FDA-Public Use
  Company Number: PHHY2012GB071891

PATIENT
  Age: 61 Year
  Sex: Female
  Weight: 78.46 kg

DRUGS (7)
  1. AMLODIPINE [Suspect]
  2. ACETYLSALICYLIC ACID [Suspect]
     Dosage: 75 MG, UNK
  3. ATORVASTATIN [Suspect]
     Route: 048
     Dates: start: 20120710, end: 20120731
  4. ATORVASTATIN [Suspect]
     Dosage: UNK
     Route: 048
     Dates: start: 20120710, end: 20120731
  5. DIPYRIDAMOLE [Suspect]
  6. PERINDOPRIL [Suspect]
  7. ZOCOR [Suspect]
     Route: 048
     Dates: start: 20120310

REACTIONS (4)
  - Renal disorder [Recovered/Resolved]
  - Abdominal pain [Unknown]
  - Myalgia [Unknown]
  - Quality of life decreased [Unknown]
